FAERS Safety Report 4916592-X (Version None)
Quarter: 2006Q1

REPORT INFORMATION
  Report Type: 
  Country: None (occurrence: None)
  Receive Date: 20060220
  Receipt Date: 20060105
  Transmission Date: 20060701
  Serious: Yes (Hospitalization)
  Sender: FDA-Public Use
  Company Number: IT-GLAXOSMITHKLINE-B0405639A

PATIENT
  Age: 41 Year
  Sex: Female

DRUGS (3)
  1. GLAZIDIM [Suspect]
     Indication: BRONCHOPNEUMONIA
     Dosage: 2G TWICE PER DAY
     Route: 030
     Dates: start: 20051023, end: 20051028
  2. LEVOFLOXACIN [Suspect]
     Indication: BRONCHOPNEUMONIA
     Dosage: 500MG PER DAY
     Route: 048
     Dates: start: 20051023, end: 20051028
  3. THYROXINE SODIUM [Concomitant]
     Indication: HYPOTHYROIDISM
     Dosage: 50MG UNKNOWN
     Route: 048

REACTIONS (5)
  - CONJUNCTIVITIS [None]
  - DYSPHAGIA [None]
  - ORAL SOFT TISSUE DISORDER [None]
  - SKIN ULCER [None]
  - STEVENS-JOHNSON SYNDROME [None]
